FAERS Safety Report 7505503-9 (Version None)
Quarter: 2011Q2

REPORT INFORMATION
  Report Type: 
  Country: None (occurrence: None)
  Receive Date: 20110526
  Receipt Date: 20110516
  Transmission Date: 20111010
  Serious: Yes (Other)
  Sender: FDA-Public Use
  Company Number: US-BRISTOL-MYERS SQUIBB COMPANY-15750128

PATIENT
  Sex: Male

DRUGS (3)
  1. COUMADIN [Suspect]
  2. ASPIRIN [Suspect]
  3. PLAVIX [Suspect]

REACTIONS (1)
  - COAGULOPATHY [None]
